FAERS Safety Report 8348677-2 (Version None)
Quarter: 2012Q2

REPORT INFORMATION
  Report Type: 
  Country: None (occurrence: None)
  Receive Date: 20120510
  Receipt Date: 20120427
  Transmission Date: 20120825
  Serious: Yes (Hospitalization)
  Sender: FDA-Public Use
  Company Number: US-ELI_LILLY_AND_COMPANY-US201204003254

PATIENT
  Sex: Female

DRUGS (17)
  1. MECLIZINE HCL [Concomitant]
     Dosage: 1 DF, OTHER
     Route: 048
  2. FENTANYL CITRATE [Concomitant]
     Dosage: 1 DF, QOD
     Route: 062
  3. FEXOFENADINE HYDROCHLORIDE [Concomitant]
     Dosage: 1 DF, TID
     Route: 048
  4. FLUTICASONE PROPIONATE [Concomitant]
     Dosage: 2 DF, TID
     Route: 045
  5. VISTARIL [Concomitant]
     Dosage: 1 DF, EVERY 8 HRS
     Route: 048
  6. AMBIEN [Concomitant]
     Dosage: 1 DF, QD
     Route: 048
  7. CALCIUM [Concomitant]
     Dosage: 1 DF, QD
     Route: 048
  8. FORTEO [Suspect]
     Dosage: 20 UG, QD
     Route: 058
     Dates: start: 20110207
  9. MYCOPHENOLATE MOFETIL [Concomitant]
     Dosage: 3 DF, TID
     Route: 048
     Dates: start: 20080909
  10. DIAZEPAM [Concomitant]
     Dosage: 1 DF, OTHER
     Route: 048
     Dates: start: 20080806
  11. LAMOTRIGINE [Concomitant]
     Dosage: 1 DF, QD
     Route: 048
  12. OXYCODONE HCL [Concomitant]
     Indication: PAIN
     Dosage: 6 DF, QD
     Route: 048
  13. VENLAFAXINE HYDROCHLORIDE [Concomitant]
     Dosage: 2 DF, QD
     Route: 048
  14. ACYCLOVIR [Concomitant]
     Dosage: 800 MG, PRN
     Route: 048
  15. DOXEPIN HCL [Concomitant]
     Dosage: 2 DF, QD
     Route: 048
  16. VITAMIN D [Concomitant]
     Dosage: 1 DF, QD
     Route: 048
     Dates: start: 20110228
  17. FENTANYL CITRATE [Concomitant]
     Dosage: 1 DF, QOD
     Route: 062

REACTIONS (2)
  - PNEUMONIA [None]
  - HYPOXIA [None]
